FAERS Safety Report 10086644 (Version 1)
Quarter: 2014Q2

REPORT INFORMATION
  Report Type: Spontaneous
  Country: US (occurrence: None)
  Receive Date: 20140417
  Receipt Date: 20140417
  Transmission Date: 20141212
  Serious: No
  Sender: FDA-Public Use
  Company Number: None

PATIENT
  Age: 66 Year
  Sex: Female
  Weight: 63.5 kg

DRUGS (4)
  1. HUMIRA 40 MG [Suspect]
     Indication: CROHN^S DISEASE
     Dosage: 40 MG INJECTION 1 INJ EVERY OTHER WEEK SUBCUTANEOUS
     Route: 058
     Dates: start: 20131030, end: 20140416
  2. XANAX [Concomitant]
  3. PREDNISONE [Concomitant]
  4. ZOLOFT [Concomitant]

REACTIONS (2)
  - Alopecia [None]
  - Alopecia [None]
